FAERS Safety Report 23082137 (Version 17)
Quarter: 2025Q4

REPORT INFORMATION
  Report Type: Spontaneous
  Country: EU (occurrence: EU)
  Receive Date: 20231019
  Receipt Date: 20251020
  Transmission Date: 20260118
  Serious: Yes (Other)
  Sender: ABBVIE
  Company Number: EU-BAXTER-2023BAX032994

PATIENT
  Sex: Male

DRUGS (17)
  1. IMBRUVICA [Suspect]
     Active Substance: IBRUTINIB
     Indication: Chronic lymphocytic leukaemia
     Route: 048
     Dates: start: 20171012
  2. TRUXIMA [Suspect]
     Active Substance: RITUXIMAB-ABBS
     Indication: Chronic lymphocytic leukaemia
     Dosage: END DATE SHOULD BE 2022
     Route: 065
     Dates: start: 202202
  3. TRUXIMA [Suspect]
     Active Substance: RITUXIMAB-ABBS
     Indication: Chronic lymphocytic leukaemia
     Route: 065
     Dates: start: 2013
  4. TRUXIMA [Suspect]
     Active Substance: RITUXIMAB-ABBS
     Indication: Chronic lymphocytic leukaemia
     Route: 065
     Dates: start: 202210
  5. BRUKINSA [Suspect]
     Active Substance: ZANUBRUTINIB
     Indication: Leukaemia recurrent
     Route: 065
     Dates: start: 202202
  6. BENDAMUSTINE [Suspect]
     Active Substance: BENDAMUSTINE
     Indication: Diffuse large B-cell lymphoma
     Dosage: DOSAGE TEXT: 2 CYCLES
     Route: 042
     Dates: start: 201707
  7. ZANUBRUTINIB [Suspect]
     Active Substance: ZANUBRUTINIB
     Indication: Chronic lymphocytic leukaemia
     Route: 065
     Dates: start: 202202
  8. VINCRISTINE [Suspect]
     Active Substance: VINCRISTINE
     Indication: Diffuse large B-cell lymphoma
     Route: 065
     Dates: start: 202210
  9. TEVIMBRA [Suspect]
     Active Substance: TISLELIZUMAB-JSGR
     Indication: Chronic lymphocytic leukaemia
     Route: 065
     Dates: start: 202202
  10. LENALIDOMIDE [Suspect]
     Active Substance: LENALIDOMIDE
     Indication: Diffuse large B-cell lymphoma
     Route: 065
  11. DOXORUBICIN HYDROCHLORIDE [Suspect]
     Active Substance: DOXORUBICIN HYDROCHLORIDE
     Indication: Chronic lymphocytic leukaemia
     Route: 065
     Dates: start: 202210
  12. CYCLOPHOSPHAMIDE [Suspect]
     Active Substance: CYCLOPHOSPHAMIDE
     Indication: Richter^s syndrome
     Dosage: FIRST LINE THERAPY
     Route: 065
     Dates: start: 2013
  13. CYCLOPHOSPHAMIDE [Suspect]
     Active Substance: CYCLOPHOSPHAMIDE
     Indication: Richter^s syndrome
     Route: 065
     Dates: start: 202210
  14. VENETOCLAX [Suspect]
     Active Substance: VENETOCLAX
     Indication: Diffuse large B-cell lymphoma
     Dosage: CAPSULE
     Route: 048
     Dates: start: 2017
  15. DIAZEPAM [Suspect]
     Active Substance: DIAZEPAM
     Indication: Chronic lymphocytic leukaemia
     Dosage: DOSAGE TEXT: 2 CYCLES, (POWDER FOR CONCENTRATE FOR SOLUTION FOR INFUSION)
     Route: 042
     Dates: start: 201707
  16. PREDNISOLONE [Suspect]
     Active Substance: PREDNISOLONE
     Indication: Diffuse large B-cell lymphoma
     Route: 065
     Dates: start: 202210
  17. FLUDARABINE [Suspect]
     Active Substance: FLUDARABINE PHOSPHATE
     Indication: Chronic lymphocytic leukaemia
     Dosage: FIRST LINE THERAPY
     Route: 065
     Dates: start: 2013

REACTIONS (9)
  - Malignant neoplasm progression [Unknown]
  - Anaemia [Unknown]
  - Lymphadenopathy [Unknown]
  - Richter^s syndrome [Unknown]
  - Thrombocytopenia [Unknown]
  - Lymphadenopathy [Unknown]
  - Off label use [Recovered/Resolved]
  - Off label use [Recovered/Resolved]
  - Off label use [Unknown]

NARRATIVE: CASE EVENT DATE: 20220201
